FAERS Safety Report 9748387 (Version 1)
Quarter: 2013Q4

REPORT INFORMATION
  Report Type: Spontaneous
  Country: US (occurrence: None)
  Receive Date: 20131209
  Receipt Date: 20131209
  Transmission Date: 20140711
  Serious: Yes (Death)
  Sender: FDA-Public Use
  Company Number: 2013P1021575

PATIENT
  Sex: Female

DRUGS (6)
  1. DIAZEPAM [Suspect]
  2. GLIMEPIRIDE [Suspect]
  3. WARFARIN [Suspect]
  4. POTASSIUM CHLORIDE [Suspect]
  5. ATENOLOL [Suspect]
  6. CITALOPRAM [Suspect]

REACTIONS (1)
  - Toxicity to various agents [None]
